FAERS Safety Report 10538099 (Version 1)
Quarter: 2014Q4

REPORT INFORMATION
  Report Type: Spontaneous
  Country: CN (occurrence: CN)
  Receive Date: 20141023
  Receipt Date: 20141023
  Transmission Date: 20150529
  Serious: Yes (Other)
  Sender: FDA-Public Use
  Company Number: CN-PFIZER INC-2014290748

PATIENT
  Age: 46 Year
  Sex: Female
  Weight: 58 kg

DRUGS (2)
  1. MS CONTIN [Suspect]
     Active Substance: MORPHINE SULFATE
     Indication: PAIN
     Dosage: 30 MG, 1X/DAY
     Route: 048
     Dates: start: 20140505, end: 20140512
  2. TYLOX [Concomitant]
     Active Substance: ACETAMINOPHEN\OXYCODONE HYDROCHLORIDE
     Indication: METASTATIC PAIN
     Dosage: UNK
     Dates: start: 201404

REACTIONS (4)
  - Chest discomfort [Recovering/Resolving]
  - Nausea [Recovering/Resolving]
  - Generalised oedema [Recovering/Resolving]
  - Pain [Recovering/Resolving]

NARRATIVE: CASE EVENT DATE: 20140505
